FAERS Safety Report 18941682 (Version 2)
Quarter: 2021Q1

REPORT INFORMATION
  Report Type: Spontaneous
  Country: JP (occurrence: JP)
  Receive Date: 20210225
  Receipt Date: 20210311
  Transmission Date: 20210420
  Serious: Yes (Death, Hospitalization, Other)
  Sender: FDA-Public Use
  Company Number: JP-ALLERGAN-2107346US

PATIENT
  Sex: Male

DRUGS (1)
  1. BOTOX [Suspect]
     Active Substance: ONABOTULINUMTOXINA
     Indication: MUSCLE SPASTICITY
     Dosage: UNK, SINGLE
     Route: 030
     Dates: start: 20200701, end: 20200701

REACTIONS (3)
  - Pneumonia [Fatal]
  - Cardiac failure [Unknown]
  - Infection [Fatal]

NARRATIVE: CASE EVENT DATE: 202010
